FAERS Safety Report 15150086 (Version 1)
Quarter: 2018Q3

REPORT INFORMATION
  Report Type: Spontaneous
  Country: FI (occurrence: FI)
  Receive Date: 20180716
  Receipt Date: 20180716
  Transmission Date: 20181010
  Serious: Yes (Life-Threatening)
  Sender: FDA-Public Use
  Company Number: FI-PFIZER INC-2018284355

PATIENT
  Age: 35 Year
  Sex: Female

DRUGS (5)
  1. BICAIN [Concomitant]
     Dosage: 1 ML, X1
     Route: 037
     Dates: start: 20180509, end: 20180509
  2. SYNTOCINON [Suspect]
     Active Substance: OXYTOCIN
     Indication: INDUCED LABOUR
     Route: 042
     Dates: start: 20180509, end: 20180509
  3. SUFENTA [Concomitant]
     Active Substance: SUFENTANIL CITRATE
     Dosage: 1 ML, X1
     Route: 037
     Dates: start: 20180509, end: 20180509
  4. CYTOTEC [Suspect]
     Active Substance: MISOPROSTOL
     Indication: INDUCED LABOUR
     Route: 048
     Dates: start: 20180508, end: 20180508
  5. BRICANYL [Concomitant]
     Active Substance: TERBUTALINE SULFATE
     Route: 042

REACTIONS (5)
  - Uterine rupture [Not Recovered/Not Resolved]
  - Contraindicated product administered [Not Recovered/Not Resolved]
  - Premature separation of placenta [Not Recovered/Not Resolved]
  - Intra-abdominal haemorrhage [Not Recovered/Not Resolved]
  - Product use in unapproved indication [Not Recovered/Not Resolved]

NARRATIVE: CASE EVENT DATE: 20180508
